FAERS Safety Report 7533674-7 (Version None)
Quarter: 2011Q2

REPORT INFORMATION
  Report Type: 
  Country: None (occurrence: None)
  Receive Date: 20110608
  Receipt Date: 20060317
  Transmission Date: 20111010
  Serious: Yes (Hospitalization, Other)
  Sender: FDA-Public Use
  Company Number: PHFR2005GB03058

PATIENT
  Sex: Female

DRUGS (2)
  1. CLOZAPINE [Suspect]
     Indication: SCHIZOPHRENIA
     Route: 048
     Dates: start: 20050227
  2. MIRTAZAPINE [Concomitant]
     Indication: DEPRESSION
     Dosage: 30MG/DAY
     Route: 048

REACTIONS (6)
  - PANCREATITIS [None]
  - BILE DUCT OBSTRUCTION [None]
  - ALANINE AMINOTRANSFERASE INCREASED [None]
  - ABDOMINAL PAIN [None]
  - CHOLELITHIASIS [None]
  - DIABETES MELLITUS [None]
